FAERS Safety Report 14224061 (Version 1)
Quarter: 2017Q4

REPORT INFORMATION
  Report Type: Spontaneous
  Country: US (occurrence: US)
  Receive Date: 20171124
  Receipt Date: 20171124
  Transmission Date: 20180321
  Serious: Yes (Disabling)
  Sender: FDA-Public Use
  Company Number: None

PATIENT
  Age: 63 Year
  Sex: Male
  Weight: 153 kg

DRUGS (19)
  1. NORCO [Concomitant]
     Active Substance: ACETAMINOPHEN\HYDROCODONE BITARTRATE
  2. CALCIUM [Concomitant]
     Active Substance: CALCIUM
  3. MULTIVITAMIN [Concomitant]
     Active Substance: VITAMINS
  4. FLAXSEED [Concomitant]
     Active Substance: FLAX SEED
  5. ELIQUIS [Suspect]
     Active Substance: APIXABAN
     Indication: ATRIAL FIBRILLATION
     Dosage: ?          QUANTITY:1 TABLET(S);?
     Route: 048
     Dates: start: 20171017, end: 20171114
  6. ELIQUIS [Suspect]
     Active Substance: APIXABAN
     Indication: CARDIOVERSION
     Dosage: ?          QUANTITY:1 TABLET(S);?
     Route: 048
     Dates: start: 20171017, end: 20171114
  7. LOPRESSOR [Concomitant]
     Active Substance: METOPROLOL TARTRATE
  8. ZINC. [Concomitant]
     Active Substance: ZINC
  9. VITAMIN D3 [Concomitant]
     Active Substance: CHOLECALCIFEROL
  10. VITAMIN B12 [Concomitant]
     Active Substance: CYANOCOBALAMIN
  11. CIALIS [Concomitant]
     Active Substance: TADALAFIL
  12. VITAMIN C [Concomitant]
     Active Substance: ASCORBIC ACID
  13. MSM [Concomitant]
     Active Substance: DIMETHYL SULFONE
  14. XANAX [Concomitant]
     Active Substance: ALPRAZOLAM
  15. COQ10 [Concomitant]
     Active Substance: UBIDECARENONE
  16. FISH OIL [Concomitant]
     Active Substance: FISH OIL
  17. POTASSIUM [Concomitant]
     Active Substance: POTASSIUM
  18. NORVASC [Concomitant]
     Active Substance: AMLODIPINE BESYLATE
  19. MAGNESIUM [Concomitant]
     Active Substance: MAGNESIUM

REACTIONS (3)
  - Arthropathy [None]
  - Gait inability [None]
  - Arthralgia [None]

NARRATIVE: CASE EVENT DATE: 20171019
